FAERS Safety Report 15848294 (Version 1)
Quarter: 2019Q1

REPORT INFORMATION
  Report Type: Spontaneous
  Country: US (occurrence: US)
  Receive Date: 20190121
  Receipt Date: 20190121
  Transmission Date: 20190417
  Serious: No
  Sender: FDA-Public Use
  Company Number: US-PFIZER INC-2019025856

PATIENT
  Age: 58 Year
  Sex: Female

DRUGS (4)
  1. PRAVASTATIN. [Suspect]
     Active Substance: PRAVASTATIN
     Dosage: UNK
  2. ZETIA [Suspect]
     Active Substance: EZETIMIBE
     Dosage: UNK
  3. LOVASTATIN. [Suspect]
     Active Substance: LOVASTATIN
     Dosage: UNK
  4. VENLAFAXINE HCL [Suspect]
     Active Substance: VENLAFAXINE HYDROCHLORIDE
     Dosage: UNK

REACTIONS (1)
  - Drug hypersensitivity [Unknown]
